FAERS Safety Report 5593838-9 (Version None)
Quarter: 2008Q1

REPORT INFORMATION
  Report Type: 
  Country: None (occurrence: None)
  Receive Date: 20080116
  Receipt Date: 20080104
  Transmission Date: 20080703
  Serious: Yes (Hospitalization)
  Sender: FDA-Public Use
  Company Number: FR-ELI_LILLY_AND_COMPANY-FR200710006496

PATIENT
  Age: 54 Year
  Sex: Female
  Weight: 94 kg

DRUGS (5)
  1. PROZAC [Suspect]
     Indication: DEPRESSION
     Dosage: 20 MG, DAILY (1/D)
     Route: 048
     Dates: start: 20070807, end: 20070816
  2. DEPAMIDE [Concomitant]
     Indication: BIPOLAR DISORDER
     Dosage: 900 MG, DAILY (1/D)
     Route: 048
     Dates: start: 20060901
  3. PREVISCAN [Concomitant]
     Indication: PHLEBITIS
     Dosage: 30 MG, DAILY (1/D)
     Route: 048
     Dates: start: 20020201
  4. LASIX [Concomitant]
     Dosage: 60 MG, DAILY (1/D)
     Route: 048
  5. GABAPENTIN [Concomitant]
     Dosage: 600 MG, DAILY (1/D)
     Route: 048

REACTIONS (8)
  - ASTHENIA [None]
  - DIZZINESS [None]
  - EPISTAXIS [None]
  - GINGIVAL BLEEDING [None]
  - HAEMATOMA [None]
  - INTERNATIONAL NORMALISED RATIO INCREASED [None]
  - POSTMENOPAUSAL HAEMORRHAGE [None]
  - SOMNOLENCE [None]
